FAERS Safety Report 24871983 (Version 1)
Quarter: 2025Q1

REPORT INFORMATION
  Report Type: Spontaneous
  Country: FR (occurrence: FR)
  Receive Date: 20250122
  Receipt Date: 20250122
  Transmission Date: 20250409
  Serious: Yes (Other)
  Sender: AUROBINDO
  Company Number: FR-AFSSAPS-AN2025000021

PATIENT
  Age: 79 Year
  Sex: Male
  Weight: 63 kg

DRUGS (8)
  1. PREDNISONE [Suspect]
     Active Substance: PREDNISONE
     Indication: VEXAS syndrome
     Dosage: 17.5 MILLIGRAM, ONCE A DAY
     Route: 048
     Dates: start: 2022
  2. ARANESP [Suspect]
     Active Substance: DARBEPOETIN ALFA
     Indication: Anaemia
     Dosage: 1 DOSAGE FORM, EVERY WEEK
     Route: 058
     Dates: start: 20240912, end: 20241206
  3. AZACITIDINE [Concomitant]
     Active Substance: AZACITIDINE
     Indication: VEXAS syndrome
     Dosage: 135 MILLIGRAM, ONCE A DAY
     Route: 058
     Dates: start: 20240919, end: 20240926
  4. AZACITIDINE [Concomitant]
     Active Substance: AZACITIDINE
     Dosage: 135 MILLIGRAM, ONCE A DAY
     Route: 058
     Dates: start: 20241114, end: 20241122
  5. HYDROCHLOROTHIAZIDE [Concomitant]
     Active Substance: HYDROCHLOROTHIAZIDE
     Indication: Product used for unknown indication
     Dosage: 12.5 MILLIGRAM, ONCE A DAY
     Route: 048
  6. IRBESARTAN [Concomitant]
     Active Substance: IRBESARTAN
     Indication: Product used for unknown indication
     Dosage: 300 MILLIGRAM, ONCE A DAY
     Route: 048
  7. METFORMIN HYDROCHLORIDE [Concomitant]
     Active Substance: METFORMIN HYDROCHLORIDE
     Indication: Product used for unknown indication
     Dosage: 1000 MILLIGRAM, ONCE A DAY
     Route: 048
  8. PANTOPRAZOLE [Concomitant]
     Active Substance: PANTOPRAZOLE
     Indication: Product used for unknown indication
     Dosage: 20 MILLIGRAM, ONCE A DAY
     Route: 048

REACTIONS (1)
  - Deep vein thrombosis [Recovering/Resolving]

NARRATIVE: CASE EVENT DATE: 20241202
